FAERS Safety Report 9031902 (Version 5)
Quarter: 2013Q2

REPORT INFORMATION
  Report Type: Report from Study
  Country: FR (occurrence: FR)
  Receive Date: 20130125
  Receipt Date: 20130523
  Transmission Date: 20140414
  Serious: Yes (Hospitalization, Other)
  Sender: FDA-Public Use
  Company Number: FR-BRISTOL-MYERS SQUIBB COMPANY-17304932

PATIENT
  Age: 57 Year
  Sex: Female

DRUGS (4)
  1. IPILIMUMAB [Suspect]
     Indication: METASTATIC MALIGNANT MELANOMA
     Dosage: IV 10 MG/KG ON 3JAN13 THIRD PERF (INITIATION PHASE) ADMINISTERED DOSE: 500MG?10DEC12,3JAN13
     Route: 042
     Dates: start: 20121119
  2. KEPPRA [Concomitant]
     Route: 048
     Dates: start: 20121109
  3. XANAX [Concomitant]
     Route: 048
     Dates: start: 20121109
  4. DONORMYL [Concomitant]
     Route: 048
     Dates: start: 20130103

REACTIONS (6)
  - Diarrhoea [Recovered/Resolved]
  - Haematochezia [Recovered/Resolved]
  - Pyrexia [Recovered/Resolved]
  - Hypophysitis [Not Recovered/Not Resolved]
  - Volvulus [Recovered/Resolved]
  - Colitis [Unknown]
